FAERS Safety Report 6368155-X (Version None)
Quarter: 2009Q3

REPORT INFORMATION
  Report Type: 
  Country: None (occurrence: None)
  Receive Date: 20090922
  Receipt Date: 20090404
  Transmission Date: 20100115
  Serious: Yes (Other)
  Sender: FDA-Public Use
  Company Number: PHEH2009US04919

PATIENT
  Sex: Female

DRUGS (1)
  1. RECLAST [Suspect]
     Dosage: UNK
     Dates: start: 20090123, end: 20090123

REACTIONS (14)
  - ABNORMAL DREAMS [None]
  - ACTIVITIES OF DAILY LIVING IMPAIRED [None]
  - ARTHRALGIA [None]
  - BEDRIDDEN [None]
  - GAIT DISTURBANCE [None]
  - HEADACHE [None]
  - INSOMNIA [None]
  - LIP SWELLING [None]
  - MIGRAINE [None]
  - ORAL PAIN [None]
  - PAIN [None]
  - PAIN IN EXTREMITY [None]
  - POSTURE ABNORMAL [None]
  - WALKING AID USER [None]
